FAERS Safety Report 8124644-9 (Version None)
Quarter: 2012Q1

REPORT INFORMATION
  Report Type: 
  Country: None (occurrence: None)
  Receive Date: 20120209
  Receipt Date: 20120209
  Transmission Date: 20120608
  Serious: Yes (Other)
  Sender: FDA-Public Use
  Company Number: None

PATIENT
  Age: 62 Year
  Sex: Male
  Weight: 93.9 kg

DRUGS (4)
  1. REMICADE [Suspect]
     Indication: RHEUMATOID ARTHRITIS
     Dosage: 400.0 MG
     Route: 042
  2. METHOTREXATE [Concomitant]
     Route: 048
  3. DICLOFENAC SODIUM [Concomitant]
     Route: 048
  4. ARAVA [Concomitant]
     Route: 048

REACTIONS (1)
  - HODGKIN'S DISEASE [None]
